FAERS Safety Report 24603043 (Version 1)
Quarter: 2024Q4

REPORT INFORMATION
  Report Type: Report from Study
  Country: CH (occurrence: CH)
  Receive Date: 20241111
  Receipt Date: 20241111
  Transmission Date: 20250115
  Serious: No
  Sender: TRAVERE THERAPEUTICS
  Company Number: CH-Vifor (International) Inc.-VIT-2024-09191

PATIENT

DRUGS (2)
  1. FILSPARI [Suspect]
     Active Substance: SPARSENTAN
     Indication: Product used for unknown indication
     Route: 065
  2. FILSPARI [Suspect]
     Active Substance: SPARSENTAN
     Route: 065

REACTIONS (1)
  - Hypotension [Unknown]
